FAERS Safety Report 15396690 (Version 1)
Quarter: 2018Q3

REPORT INFORMATION
  Report Type: Spontaneous
  Country: US (occurrence: US)
  Receive Date: 20180912
  Receipt Date: 20180912
  Transmission Date: 20181010
  Serious: Yes (Other)
  Sender: FDA-Public Use
  Company Number: None

PATIENT
  Age: 61 Year
  Sex: Female
  Weight: 83.46 kg

DRUGS (1)
  1. HYDROCHLOROTHIAZIDE 12.5MG [Suspect]
     Active Substance: HYDROCHLOROTHIAZIDE
     Indication: HYPERTENSION
     Dosage: 1 PILL 1 DAILY MOUTH?
     Route: 048
     Dates: start: 20180826, end: 20180830

REACTIONS (4)
  - Epistaxis [None]
  - Feeding disorder [None]
  - Blood pressure abnormal [None]
  - Dizziness [None]

NARRATIVE: CASE EVENT DATE: 20180827
